FAERS Safety Report 19379890 (Version 1)
Quarter: 2021Q2

REPORT INFORMATION
  Report Type: Spontaneous
  Country: JP (occurrence: JP)
  Receive Date: 20210607
  Receipt Date: 20210607
  Transmission Date: 20210717
  Serious: Yes (Other)
  Sender: FDA-Public Use
  Company Number: NVSJ2021JP008312

PATIENT
  Age: 81 Year
  Sex: Male

DRUGS (3)
  1. BEOVU [Suspect]
     Active Substance: BROLUCIZUMAB-DBLL
     Dosage: 6 MG
     Route: 031
  2. BEOVU [Suspect]
     Active Substance: BROLUCIZUMAB-DBLL
     Indication: POLYPOIDAL CHOROIDAL VASCULOPATHY
     Dosage: 6 MG
     Route: 031
  3. BEOVU [Suspect]
     Active Substance: BROLUCIZUMAB-DBLL
     Indication: NEOVASCULAR AGE-RELATED MACULAR DEGENERATION
     Dosage: 6 MG
     Route: 031

REACTIONS (12)
  - Vitritis [Unknown]
  - Vitreous opacities [Recovering/Resolving]
  - Anterior chamber cell [Recovering/Resolving]
  - Keratic precipitates [Recovered/Resolved]
  - Detachment of retinal pigment epithelium [Unknown]
  - Vitreous floaters [Unknown]
  - Conjunctival hyperaemia [Unknown]
  - Eye inflammation [Unknown]
  - Iritis [Unknown]
  - Subretinal fluid [Unknown]
  - Blindness transient [Recovered/Resolved]
  - Vision blurred [Recovering/Resolving]
